FAERS Safety Report 7767344-7 (Version None)
Quarter: 2011Q3

REPORT INFORMATION
  Report Type: 
  Country: None (occurrence: None)
  Receive Date: 20110922
  Receipt Date: 20110919
  Transmission Date: 20111222
  Serious: Yes (Death, Hospitalization, Other)
  Sender: FDA-Public Use
  Company Number: NZ-B.I. PHARMACEUTICALS,INC./RIDGEFIELD-2011-AU-01361AU

PATIENT
  Age: 92 Year
  Sex: Female

DRUGS (1)
  1. PRADAXA [Suspect]

REACTIONS (8)
  - GASTRIC HAEMORRHAGE [None]
  - CEREBROVASCULAR ACCIDENT [None]
  - PNEUMONIA [None]
  - DECREASED APPETITE [None]
  - CARDIAC DISORDER [None]
  - DYSPHAGIA [None]
  - DYSPEPSIA [None]
  - BACK PAIN [None]
